FAERS Safety Report 20562252 (Version 1)
Quarter: 2022Q1

REPORT INFORMATION
  Report Type: Spontaneous
  Country: US (occurrence: US)
  Receive Date: 20220307
  Receipt Date: 20220307
  Transmission Date: 20220424
  Serious: Yes (Death)
  Sender: FDA-Public Use
  Company Number: US-METUCHEN-STN-2022-0044

PATIENT
  Age: 72 Year
  Sex: Male

DRUGS (1)
  1. STENDRA [Suspect]
     Active Substance: AVANAFIL
     Indication: Product used for unknown indication
     Dosage: 200MG
     Route: 048
     Dates: start: 20200815, end: 20200815

REACTIONS (2)
  - Sudden death [Fatal]
  - Tachycardia [Fatal]

NARRATIVE: CASE EVENT DATE: 20200815
